FAERS Safety Report 12620074 (Version 1)
Quarter: 2016Q3

REPORT INFORMATION
  Report Type: Spontaneous
  Country: US (occurrence: US)
  Receive Date: 20160803
  Receipt Date: 20160803
  Transmission Date: 20161109
  Serious: No
  Sender: FDA-Public Use
  Company Number: US-ENDO PHARMACEUTICALS INC.-2016-002504

PATIENT
  Sex: Male
  Weight: 81.72 kg

DRUGS (6)
  1. TESTOPEL [Suspect]
     Active Substance: TESTOSTERONE
     Dosage: 12 PELLETS
     Route: 058
     Dates: start: 201505
  2. TESTOPEL [Suspect]
     Active Substance: TESTOSTERONE
     Dosage: 12 PELLETS
     Route: 058
     Dates: start: 201509
  3. TESTOPEL [Suspect]
     Active Substance: TESTOSTERONE
     Dosage: 12 PELLETS
     Route: 058
     Dates: start: 201512
  4. TESTOPEL [Suspect]
     Active Substance: TESTOSTERONE
     Indication: BLOOD TESTOSTERONE DECREASED
     Dosage: 8 PELLETS
     Route: 058
     Dates: start: 2015
  5. LEVOTHYROXINE. [Concomitant]
     Active Substance: LEVOTHYROXINE
     Indication: THYROID DISORDER
  6. TESTOPEL [Suspect]
     Active Substance: TESTOSTERONE
     Dosage: 6 PELLETS
     Route: 058

REACTIONS (2)
  - Blood testosterone decreased [Recovered/Resolved]
  - Prescribed overdose [Recovered/Resolved]

NARRATIVE: CASE EVENT DATE: 2015
